FAERS Safety Report 11896411 (Version 2)
Quarter: 2018Q1

REPORT INFORMATION
  Report Type: Spontaneous
  Country: GB (occurrence: GB)
  Receive Date: 20160107
  Receipt Date: 20180213
  Transmission Date: 20180508
  Serious: Yes (Other)
  Sender: FDA-Public Use
  Company Number: GB-TEVA-623258ACC

PATIENT
  Age: 35 Year
  Sex: Female
  Weight: 65 kg

DRUGS (7)
  1. ARIPIPRAZOLE. [Suspect]
     Active Substance: ARIPIPRAZOLE
     Indication: HYPERPROLACTINAEMIA
     Dosage: 2.5MG FOR A WEEK THEN 5MG FOR TWO WEEKS
     Route: 048
     Dates: start: 20151022, end: 20151116
  2. PROCYCLIDINE [Concomitant]
     Active Substance: PROCYCLIDINE
  3. PYRIDOXINE [Concomitant]
     Active Substance: PYRIDOXINE
  4. LEVOTHYROXINE. [Concomitant]
     Active Substance: LEVOTHYROXINE
  5. RISPERIDONE. [Concomitant]
     Active Substance: RISPERIDONE
     Indication: ABNORMAL BEHAVIOUR
     Dosage: 6 MILLIGRAM DAILY;
  6. SODIUM VALPROATE [Concomitant]
     Active Substance: VALPROATE SODIUM
  7. RISPERIDONE. [Concomitant]
     Active Substance: RISPERIDONE
     Dosage: 2 MILLIGRAM DAILY;

REACTIONS (6)
  - Intentional self-injury [Recovered/Resolved]
  - Aggression [Recovered/Resolved]
  - Condition aggravated [Recovered/Resolved]
  - Agitation [Recovered/Resolved]
  - Confusional state [Recovered/Resolved]
  - Off label use [Recovered/Resolved]

NARRATIVE: CASE EVENT DATE: 20151022
